FAERS Safety Report 7430297-5 (Version None)
Quarter: 2011Q2

REPORT INFORMATION
  Report Type: 
  Country: None (occurrence: None)
  Receive Date: 20110421
  Receipt Date: 20110415
  Transmission Date: 20111010
  Serious: Yes (Other)
  Sender: FDA-Public Use
  Company Number: US-ELI_LILLY_AND_COMPANY-US201104005186

PATIENT
  Age: 59 Year
  Sex: Male

DRUGS (3)
  1. CIALIS [Concomitant]
     Dosage: UNK, UNKNOWN
     Route: 065
  2. EFFIENT [Suspect]
     Indication: ACUTE CORONARY SYNDROME
     Dosage: 10 MG, UNKNOWN
     Route: 065
     Dates: start: 20100804, end: 20110321
  3. LIVALO [Concomitant]
     Dosage: UNK, UNKNOWN
     Route: 065

REACTIONS (1)
  - MYOCARDIAL INFARCTION [None]
